FAERS Safety Report 24444446 (Version 2)
Quarter: 2024Q4

REPORT INFORMATION
  Report Type: Report from Study
  Country: US (occurrence: US)
  Receive Date: 20241016
  Receipt Date: 20241017
  Transmission Date: 20250114
  Serious: No
  Sender: ROCHE
  Company Number: US-ROCHE-2824592

PATIENT
  Age: 51 Year
  Sex: Male
  Weight: 63.96 kg

DRUGS (7)
  1. RITUXAN [Suspect]
     Active Substance: RITUXIMAB
     Indication: Myopathy
     Dosage: INFUSE 1000MG ON DAY(S) 1 AND DAY(S) 15 EVERY 6 MONTH.
     Route: 041
  2. FOSAMAX [Concomitant]
     Active Substance: ALENDRONATE SODIUM
  3. IMURAN [Concomitant]
     Active Substance: AZATHIOPRINE
  4. OSCAL [Concomitant]
     Active Substance: CALCIUM CARBONATE
  5. VITAMIN D3 [Concomitant]
     Active Substance: CHOLECALCIFEROL
  6. PREDNISONE [Concomitant]
     Active Substance: PREDNISONE
  7. OMEPRAZOLE [Concomitant]
     Active Substance: OMEPRAZOLE

REACTIONS (2)
  - Off label use [Unknown]
  - No adverse event [Unknown]
